FAERS Safety Report 17864004 (Version 2)
Quarter: 2020Q3

REPORT INFORMATION
  Report Type: Spontaneous
  Country: US (occurrence: US)
  Receive Date: 20200605
  Receipt Date: 20200716
  Transmission Date: 20201103
  Serious: Yes (Other)
  Sender: FDA-Public Use
  Company Number: US-ASTRAZENECA-2020SE71051

PATIENT
  Age: 56 Year
  Sex: Female
  Weight: 102.1 kg

DRUGS (2)
  1. SYMBICORT [Suspect]
     Active Substance: BUDESONIDE\FORMOTEROL FUMARATE DIHYDRATE
     Indication: ASTHMA
     Dosage: 160/4.5MCG, 2 PUFFS, TWO TIMES A DAY
     Route: 055
     Dates: start: 2012
  2. SPIRIVA [Concomitant]
     Active Substance: TIOTROPIUM BROMIDE MONOHYDRATE

REACTIONS (9)
  - Product dose omission issue [Unknown]
  - Drug ineffective [Unknown]
  - Incorrect dose administered [Unknown]
  - Device malfunction [Unknown]
  - Visual impairment [Unknown]
  - Retinal detachment [Unknown]
  - Retinal tear [Unknown]
  - Dry eye [Unknown]
  - Intentional product misuse [Unknown]

NARRATIVE: CASE EVENT DATE: 2015
